FAERS Safety Report 5861311-6 (Version None)
Quarter: 2008Q3

REPORT INFORMATION
  Report Type: 
  Country: None (occurrence: None)
  Receive Date: 20080827
  Receipt Date: 20080411
  Transmission Date: 20090109
  Serious: No
  Sender: FDA-Public Use
  Company Number: US-ABBOTT-08P-163-0446718-00

PATIENT
  Sex: Male

DRUGS (4)
  1. NIASPAN [Suspect]
     Indication: BLOOD CHOLESTEROL INCREASED
     Route: 048
     Dates: start: 20080321
  2. NIASPAN [Suspect]
     Route: 048
     Dates: start: 20080101, end: 20080321
  3. METOPROLOL SUCCINATE [Concomitant]
     Indication: CARDIAC DISORDER
  4. OMEPRAZOLE [Concomitant]
     Indication: GASTROINTESTINAL DISORDER

REACTIONS (2)
  - FLUSHING [None]
  - PAIN [None]
